FAERS Safety Report 16173585 (Version 1)
Quarter: 2019Q2

REPORT INFORMATION
  Report Type: Spontaneous
  Country: BR (occurrence: BR)
  Receive Date: 20190409
  Receipt Date: 20190409
  Transmission Date: 20190711
  Serious: Yes (Other)
  Sender: FDA-Public Use
  Company Number: BR-BAYER-2019-064561

PATIENT
  Sex: Female

DRUGS (1)
  1. MIRENA [Suspect]
     Active Substance: LEVONORGESTREL
     Dosage: 20 MCG/DL, CONT
     Route: 015
     Dates: start: 201902

REACTIONS (7)
  - Insomnia [None]
  - Hypoaesthesia oral [None]
  - Mental impairment [None]
  - Alopecia [None]
  - Depression [None]
  - Migraine [None]
  - Palpitations [None]

NARRATIVE: CASE EVENT DATE: 2019
